FAERS Safety Report 20319398 (Version 2)
Quarter: 2022Q1

REPORT INFORMATION
  Report Type: Report from Study
  Country: US (occurrence: None)
  Receive Date: 20220110
  Receipt Date: 20220314
  Transmission Date: 20220423
  Serious: Yes (Hospitalization)
  Sender: FDA-Public Use
  Company Number: US-ROCHE-2993821

PATIENT
  Age: 62 Year
  Sex: Male
  Weight: 88.2 kg

DRUGS (3)
  1. ATEZOLIZUMAB [Suspect]
     Active Substance: ATEZOLIZUMAB
     Indication: Squamous cell carcinoma of head and neck
     Dosage: OVER 30-60 MINUTES EVERY 3 WEEKS FOR UP TO 8 DOSES
     Route: 041
     Dates: start: 20210817
  2. CISPLATIN [Suspect]
     Active Substance: CISPLATIN
     Indication: Squamous cell carcinoma of head and neck
     Dosage: 0 MHZ?LAST DOSE OF CISPLATIN ON 25/MAY/2021?OVER 1-2 HOURS ONCE WEEKLY FOR 6 WEEKS
     Route: 042
     Dates: start: 20210420
  3. OXYCODONE [Suspect]
     Active Substance: OXYCODONE
     Indication: Product used for unknown indication
     Route: 065

REACTIONS (7)
  - Hyponatraemia [Unknown]
  - Acute kidney injury [Recovered/Resolved]
  - Dehydration [Unknown]
  - Fatigue [Unknown]
  - Urinary tract infection [Unknown]
  - Constipation [Unknown]
  - Tremor [Unknown]

NARRATIVE: CASE EVENT DATE: 20210910
